FAERS Safety Report 19823768 (Version 2)
Quarter: 2021Q4

REPORT INFORMATION
  Report Type: Spontaneous
  Country: DE (occurrence: DE)
  Receive Date: 20210914
  Receipt Date: 20211011
  Transmission Date: 20220303
  Serious: Yes (Hospitalization)
  Sender: FDA-Public Use
  Company Number: DE-SAMSUNG BIOEPIS-SB-2021-21892

PATIENT
  Age: 38 Year
  Sex: Female
  Weight: 53 kg

DRUGS (8)
  1. IMRALDI [Suspect]
     Active Substance: ADALIMUMAB
     Indication: Colitis ulcerative
     Dosage: ON DAY ONE AND DAY TWO
     Route: 058
     Dates: start: 20210702
  2. IMRALDI [Suspect]
     Active Substance: ADALIMUMAB
     Dosage: TOTAL SIX DOSES FOR 40 MILLIGRAM
     Route: 058
     Dates: end: 20210718
  3. TACROLIMUS [Suspect]
     Active Substance: TACROLIMUS
     Indication: Colitis ulcerative
     Dosage: UNKNOWN
     Route: 065
     Dates: start: 20210721, end: 20210802
  4. Salofalk [Concomitant]
     Indication: Colitis ulcerative
     Route: 065
     Dates: start: 20210415
  5. Salofalk [Concomitant]
     Route: 065
  6. PANTOPRAZOLE SODIUM [Concomitant]
     Active Substance: PANTOPRAZOLE SODIUM
     Indication: Product used for unknown indication
     Route: 065
  7. CHOLECALCIFEROL [Concomitant]
     Active Substance: CHOLECALCIFEROL
     Indication: Prophylaxis
     Route: 065
  8. CALCIUM CARBONATE\CHOLECALCIFEROL [Concomitant]
     Active Substance: CALCIUM CARBONATE\CHOLECALCIFEROL
     Indication: Prophylaxis
     Route: 065

REACTIONS (2)
  - Colitis [Recovered/Resolved]
  - Therapeutic product effect decreased [Unknown]

NARRATIVE: CASE EVENT DATE: 20210707
